FAERS Safety Report 6213872-5 (Version None)
Quarter: 2009Q2

REPORT INFORMATION
  Report Type: 
  Country: None (occurrence: None)
  Receive Date: 20090601
  Receipt Date: 20090601
  Transmission Date: 20091009
  Serious: No
  Sender: FDA-Public Use
  Company Number: None

PATIENT
  Age: 63 Year
  Sex: Female
  Weight: 65.7716 kg

DRUGS (1)
  1. VOLTAREN [Suspect]
     Indication: JOINT SPRAIN
     Dosage: 40Z 4 TIMES DAILY
     Dates: start: 20090528, end: 20090530

REACTIONS (3)
  - BURNING SENSATION [None]
  - DERMATITIS ALLERGIC [None]
  - PRURITUS [None]
